FAERS Safety Report 12160666 (Version 1)
Quarter: 2016Q1

REPORT INFORMATION
  Report Type: Spontaneous
  Country: US (occurrence: US)
  Receive Date: 20160308
  Receipt Date: 20160308
  Transmission Date: 20160526
  Serious: Yes (Other)
  Sender: FDA-Public Use
  Company Number: US-BAYER-2016-040842

PATIENT
  Sex: Female

DRUGS (1)
  1. MIRENA [Suspect]
     Active Substance: LEVONORGESTREL
     Dosage: 20 MCG/24HR, CONT
     Route: 015
     Dates: start: 201401, end: 20140430

REACTIONS (8)
  - Genital haemorrhage [None]
  - Nausea [None]
  - Device issue [None]
  - Vaginal discharge [None]
  - Vomiting [None]
  - Uterine perforation [None]
  - Pain [None]
  - Vaginal haemorrhage [None]

NARRATIVE: CASE EVENT DATE: 20140205
